FAERS Safety Report 5209336-8 (Version None)
Quarter: 2006Q4

REPORT INFORMATION
  Report Type: 
  Country: None (occurrence: None)
  Receive Date: 20061101
  Receipt Date: 20060403
  Transmission Date: 20070319
  Serious: Yes (Hospitalization)
  Sender: FDA-Public Use
  Company Number: DSA_27957_2006

PATIENT
  Age: 56 Year
  Sex: Female

DRUGS (6)
  1. ATIVAN [Suspect]
     Dosage: 14 MG ONCE PO
     Route: 048
     Dates: start: 20050101
  2. LUNESTA [Suspect]
     Dosage: 40 MG ONCE PO
     Route: 048
     Dates: start: 20050101
  3. LUNESTA [Suspect]
     Indication: INITIAL INSOMNIA
     Dosage: 2 MG UNK PO
     Route: 048
     Dates: start: 20050101
  4. PROZAC [Concomitant]
  5. ESTRADIOL INJ [Concomitant]
  6. ZYRTEC [Concomitant]

REACTIONS (3)
  - COMA [None]
  - MULTIPLE DRUG OVERDOSE INTENTIONAL [None]
  - SUICIDE ATTEMPT [None]
